FAERS Safety Report 21087166 (Version 1)
Quarter: 2022Q3

REPORT INFORMATION
  Report Type: Spontaneous
  Country: US (occurrence: None)
  Receive Date: 20220714
  Receipt Date: 20220714
  Transmission Date: 20221027
  Serious: Yes (Hospitalization)
  Sender: FDA-Public Use
  Company Number: None

PATIENT
  Age: 70 Year
  Sex: Male
  Weight: 102 kg

DRUGS (2)
  1. ESCITALOPRAM OXALATE [Suspect]
     Active Substance: ESCITALOPRAM OXALATE
     Indication: Depression
     Dosage: 5 MG EVERY DAY PO?
     Route: 048
     Dates: start: 20220412, end: 20220428
  2. GABAPENTIN [Suspect]
     Active Substance: GABAPENTIN
     Indication: Pain
     Dosage: 300 MG TID PO?
     Route: 048
     Dates: start: 20220417, end: 20220428

REACTIONS (5)
  - Dizziness [None]
  - Dizziness [None]
  - Hallucination [None]
  - Confusional state [None]
  - Fall [None]

NARRATIVE: CASE EVENT DATE: 20220424
